FAERS Safety Report 9018175 (Version 1)
Quarter: 2013Q1

REPORT INFORMATION
  Report Type: Spontaneous
  Country: US (occurrence: None)
  Receive Date: 20130111
  Receipt Date: 20130111
  Transmission Date: 20140127
  Serious: Yes (Life-Threatening, Hospitalization)
  Sender: FDA-Public Use
  Company Number: None

PATIENT
  Sex: Male
  Weight: 80 kg

DRUGS (5)
  1. ABRAXANE [Suspect]
     Indication: PANCREATIC CARCINOMA
     Dosage: 125MG PER METER SQUARED WEEKLY FOR 3 WEEKS IV
     Route: 042
     Dates: start: 20121111, end: 20121216
  2. GEMCITABINE [Concomitant]
  3. BETA-BLOCKER [Concomitant]
  4. INSULIN [Concomitant]
  5. ZOFRAN [Concomitant]

REACTIONS (4)
  - Fatigue [None]
  - Syncope [None]
  - Atrioventricular block complete [None]
  - Rhythm idioventricular [None]
